FAERS Safety Report 10247532 (Version 2)
Quarter: 2014Q2

REPORT INFORMATION
  Report Type: Report from Study
  Country: TH (occurrence: TH)
  Receive Date: 20140619
  Receipt Date: 20140619
  Transmission Date: 20141212
  Serious: Yes (Other)
  Sender: FDA-Public Use
  Company Number: TH-ABBVIE-10P-155-0652526-00

PATIENT
  Age: 17 Year
  Sex: Female

DRUGS (6)
  1. KALETRA TABLETS [Suspect]
     Indication: HIV INFECTION
     Route: 048
     Dates: start: 20100216
  2. LAMIVUDINE [Concomitant]
     Indication: HIV INFECTION
     Route: 048
     Dates: start: 20100216, end: 20100604
  3. COMBIVIR [Concomitant]
     Indication: HIV INFECTION
     Dates: start: 20100604
  4. VIREAD [Concomitant]
     Indication: HIV INFECTION
     Route: 048
     Dates: start: 20100216
  5. ETRAVIRINE [Concomitant]
     Indication: HIV INFECTION
     Dates: start: 20100216, end: 20100603
  6. ETRAVIRINE [Concomitant]
     Dates: start: 20100604

REACTIONS (1)
  - Abortion induced [Unknown]
